FAERS Safety Report 6217236-X (Version None)
Quarter: 2009Q2

REPORT INFORMATION
  Report Type: 
  Country: None (occurrence: None)
  Receive Date: 20090608
  Receipt Date: 20090526
  Transmission Date: 20091009
  Serious: Yes (Hospitalization, Disabling)
  Sender: FDA-Public Use
  Company Number: JP-PFIZER INC-2009203479

PATIENT
  Age: 58 Year

DRUGS (5)
  1. SUNITINIB MALATE [Suspect]
     Indication: RENAL CELL CARCINOMA
     Dosage: 37.5 MG, 1X/DAY
     Route: 048
     Dates: start: 20080926, end: 20090211
  2. MUCOSOLVAN [Concomitant]
     Dosage: UNK
     Route: 048
  3. AMOBAN [Concomitant]
     Dosage: UNK
     Route: 048
  4. MAGNESIUM OXIDE [Concomitant]
     Route: 048
     Dates: start: 20090130, end: 20090212
  5. GASTER [Concomitant]
     Route: 048
     Dates: start: 20090130, end: 20090212

REACTIONS (2)
  - ABDOMINAL DISCOMFORT [None]
  - EJECTION FRACTION DECREASED [None]
